FAERS Safety Report 21094902 (Version 4)
Quarter: 2024Q3

REPORT INFORMATION
  Report Type: Spontaneous
  Country: IN (occurrence: IN)
  Receive Date: 20220718
  Receipt Date: 20240830
  Transmission Date: 20241017
  Serious: Yes (Other)
  Sender: PFIZER
  Company Number: IN-PFIZER INC-2019138214

PATIENT
  Age: 73 Year
  Sex: Female
  Weight: 67.5 kg

DRUGS (4)
  1. PALBOCICLIB [Suspect]
     Active Substance: PALBOCICLIB
     Indication: Breast cancer metastatic
     Dosage: 100 MG, 1X/DAY
     Route: 048
     Dates: start: 20180419, end: 20240610
  2. PALBOCICLIB [Suspect]
     Active Substance: PALBOCICLIB
     Dosage: 100 MG, CYCLIC (1-0-0, 21 DAYS ON 7 DAYS OFF)
     Dates: end: 202205
  3. PALBOCICLIB [Suspect]
     Active Substance: PALBOCICLIB
     Dosage: UNK
     Route: 048
     Dates: end: 202206
  4. PALBOCICLIB [Suspect]
     Active Substance: PALBOCICLIB
     Dosage: 100 MG, 1X/DAY
     Route: 048
     Dates: end: 20240623

REACTIONS (9)
  - Acute respiratory failure [Recovered/Resolved]
  - Pulmonary oedema [Unknown]
  - Lower respiratory tract infection [Unknown]
  - Bronchitis [Unknown]
  - Asthenia [Recovered/Resolved]
  - Cardiac disorder [Unknown]
  - Platelet count abnormal [Unknown]
  - Vital functions abnormal [Unknown]
  - Malaise [Unknown]

NARRATIVE: CASE EVENT DATE: 20240610
